FAERS Safety Report 7659646-X (Version None)
Quarter: 2011Q3

REPORT INFORMATION
  Report Type: 
  Country: None (occurrence: None)
  Receive Date: 20110802
  Receipt Date: 20110721
  Transmission Date: 20111222
  Serious: Yes (Hospitalization, Other)
  Sender: FDA-Public Use
  Company Number: 2006-149793-NL

PATIENT
  Age: 29 Year
  Sex: Female
  Weight: 61.2356 kg

DRUGS (6)
  1. VICODIN [Concomitant]
  2. NAPROSYN [Concomitant]
  3. NUVARING [Suspect]
     Indication: CONTRACEPTION
     Dosage: 1 DF; VAG
     Route: 067
     Dates: start: 20050621, end: 20050913
  4. LEVAQUIN [Concomitant]
  5. SOMA [Concomitant]
  6. WELLBUTRIN [Concomitant]

REACTIONS (18)
  - PNEUMONIA [None]
  - PULMONARY EMBOLISM [None]
  - DEEP VEIN THROMBOSIS [None]
  - ECCHYMOSIS [None]
  - BACK PAIN [None]
  - PLEURAL EFFUSION [None]
  - FOOT FRACTURE [None]
  - OEDEMA PERIPHERAL [None]
  - MUSCLE SPASMS [None]
  - CARDIOMEGALY [None]
  - MITRAL VALVE INCOMPETENCE [None]
  - TRICUSPID VALVE INCOMPETENCE [None]
  - PLATELET COUNT INCREASED [None]
  - PULMONARY INFARCTION [None]
  - LIGAMENT SPRAIN [None]
  - FACTOR V LEIDEN MUTATION [None]
  - FALL [None]
  - PERIPARTUM CARDIOMYOPATHY [None]
